FAERS Safety Report 11202490 (Version 1)
Quarter: 2015Q2

REPORT INFORMATION
  Report Type: Spontaneous
  Country: US (occurrence: US)
  Receive Date: 20150619
  Receipt Date: 20150619
  Transmission Date: 20150821
  Serious: No
  Sender: FDA-Public Use
  Company Number: US-PFIZER INC-2015199233

PATIENT
  Age: 50 Year
  Sex: Female
  Weight: 62.59 kg

DRUGS (4)
  1. RELPAX [Suspect]
     Active Substance: ELETRIPTAN HYDROBROMIDE
     Indication: MIGRAINE
     Dosage: 40 MG, 2X/DAY (SOMETIMES SHE TAKES TWO)
     Dates: start: 2011, end: 201504
  2. LYRICA [Concomitant]
     Active Substance: PREGABALIN
     Dosage: (300 MG AT BED TIME, 75 MG IN MORNING AND 75 MG IN AFTERNOON), 3X/DAY
  3. CELEBREX [Concomitant]
     Active Substance: CELECOXIB
     Dosage: 200 MG, UNK
  4. DIVALPROEX [Concomitant]
     Active Substance: DIVALPROEX SODIUM
     Indication: EPILEPSY
     Dosage: UNK

REACTIONS (3)
  - Intentional product misuse [Unknown]
  - Migraine [Recovering/Resolving]
  - Condition aggravated [Recovering/Resolving]

NARRATIVE: CASE EVENT DATE: 2011
